FAERS Safety Report 19645059 (Version 1)
Quarter: 2021Q3

REPORT INFORMATION
  Report Type: Spontaneous
  Country: PE (occurrence: PE)
  Receive Date: 20210802
  Receipt Date: 20210802
  Transmission Date: 20211014
  Serious: Yes (Other)
  Sender: FDA-Public Use
  Company Number: PE-JNJFOC-20210750318

PATIENT
  Age: 40 Year
  Sex: Female

DRUGS (1)
  1. HALDOL DECANOAS [Suspect]
     Active Substance: HALOPERIDOL DECANOATE
     Indication: SCHIZOPHRENIA
     Dosage: LAST APPLICATION 21/JUL/2021.
     Route: 030

REACTIONS (3)
  - Product dose omission issue [Unknown]
  - Schizophrenia [Unknown]
  - Eye movement disorder [Unknown]
